FAERS Safety Report 25667753 (Version 1)
Quarter: 2025Q3

REPORT INFORMATION
  Report Type: Spontaneous
  Country: IL (occurrence: IL)
  Receive Date: 20250812
  Receipt Date: 20250812
  Transmission Date: 20251021
  Serious: Yes (Death)
  Sender: AMGEN
  Company Number: IL-AMGEN-ISRSP2025158200

PATIENT
  Age: 1 Year
  Sex: Male

DRUGS (1)
  1. RAVICTI [Suspect]
     Active Substance: GLYCEROL PHENYLBUTYRATE
     Indication: Allan-Herndon-Dudley syndrome
     Route: 065
     Dates: start: 202408

REACTIONS (1)
  - Death [Fatal]
